FAERS Safety Report 6177703-4 (Version None)
Quarter: 2009Q2

REPORT INFORMATION
  Report Type: 
  Country: None (occurrence: None)
  Receive Date: 20090504
  Receipt Date: 20090424
  Transmission Date: 20091009
  Serious: Yes (Death)
  Sender: FDA-Public Use
  Company Number: DE-RANBAXY-2009RR-23735

PATIENT
  Sex: Male

DRUGS (1)
  1. OFLOXACIN [Suspect]
     Route: 048

REACTIONS (1)
  - PULMONARY EMBOLISM [None]
